FAERS Safety Report 5452295-3 (Version None)
Quarter: 2007Q3

REPORT INFORMATION
  Report Type: 
  Country: None (occurrence: None)
  Receive Date: 20070912
  Receipt Date: 20070912
  Transmission Date: 20080115
  Serious: No
  Sender: FDA-Public Use
  Company Number: None

PATIENT
  Age: 52 Year
  Sex: Female

DRUGS (1)
  1. TIMOLOL MALEATE [Suspect]
     Indication: GLAUCOMA
     Dosage: ONE DROP EVERY DAY BOTH EYE OPHTHALMIC
     Route: 047
     Dates: start: 20070909, end: 20070910

REACTIONS (3)
  - INSTILLATION SITE ERYTHEMA [None]
  - INSTILLATION SITE IRRITATION [None]
  - INSTILLATION SITE PAIN [None]
